FAERS Safety Report 19616902 (Version 1)
Quarter: 2021Q3

REPORT INFORMATION
  Report Type: Spontaneous
  Country: US (occurrence: US)
  Receive Date: 20210727
  Receipt Date: 20210727
  Transmission Date: 20211014
  Serious: No
  Sender: FDA-Public Use
  Company Number: US-ABBVIE-21K-163-3851085-00

PATIENT
  Sex: Female
  Weight: 88.53 kg

DRUGS (1)
  1. SYNTHROID [Suspect]
     Active Substance: LEVOTHYROXINE SODIUM
     Indication: HYPOTHYROIDISM
     Route: 048
     Dates: start: 2005

REACTIONS (8)
  - Heart rate increased [Not Recovered/Not Resolved]
  - Gastrointestinal disorder [Not Recovered/Not Resolved]
  - Vision blurred [Not Recovered/Not Resolved]
  - Arthropod bite [Recovered/Resolved]
  - Blood pressure increased [Not Recovered/Not Resolved]
  - Vertigo [Not Recovered/Not Resolved]
  - Head discomfort [Not Recovered/Not Resolved]
  - Lyme disease [Recovered/Resolved]

NARRATIVE: CASE EVENT DATE: 2005
